FAERS Safety Report 11319604 (Version 1)
Quarter: 2015Q3

REPORT INFORMATION
  Report Type: Spontaneous
  Country: BR (occurrence: BR)
  Receive Date: 20150729
  Receipt Date: 20150729
  Transmission Date: 20151125
  Serious: Yes (Hospitalization, Other)
  Sender: FDA-Public Use
  Company Number: BR-ELI_LILLY_AND_COMPANY-BR201507005313

PATIENT
  Sex: Female

DRUGS (5)
  1. HUMULIN N [Suspect]
     Active Substance: INSULIN HUMAN
     Indication: DIABETES MELLITUS
     Dosage: 30 IU, EACH MORNING
     Route: 058
     Dates: start: 2013, end: 20150710
  2. HUMULIN N [Suspect]
     Active Substance: INSULIN HUMAN
     Dosage: 30 IU, EACH EVENING
     Route: 058
     Dates: start: 2013, end: 20150710
  3. ONGLYZA [Concomitant]
     Active Substance: SAXAGLIPTIN HYDROCHLORIDE
     Indication: HYPERGLYCAEMIA
     Dosage: UNK
     Route: 065
  4. ONGLYZA [Concomitant]
     Active Substance: SAXAGLIPTIN HYDROCHLORIDE
     Indication: DIABETES MELLITUS INADEQUATE CONTROL
  5. HUMULIN R [Suspect]
     Active Substance: INSULIN HUMAN
     Indication: DIABETES MELLITUS
     Dosage: UNK UNK, PRN
     Route: 058
     Dates: start: 2013, end: 20150710

REACTIONS (10)
  - Stress [Unknown]
  - Diabetes mellitus inadequate control [Not Recovered/Not Resolved]
  - Decreased appetite [Unknown]
  - Dementia Alzheimer^s type [Unknown]
  - Anxiety [Unknown]
  - Hyperglycaemia [Not Recovered/Not Resolved]
  - Morton^s neuralgia [Unknown]
  - Panic reaction [Recovered/Resolved]
  - Drug dose omission [Not Recovered/Not Resolved]
  - Spinal pain [Unknown]

NARRATIVE: CASE EVENT DATE: 20150710
